FAERS Safety Report 17066734 (Version 1)
Quarter: 2019Q4

REPORT INFORMATION
  Report Type: Spontaneous
  Country: US (occurrence: US)
  Receive Date: 20191024
  Receipt Date: 20191024
  Transmission Date: 20200122
  Serious: No
  Sender: FDA-Public Use
  Company Number: None

PATIENT
  Age: 70 Year
  Sex: Female

DRUGS (1)
  1. PROLIA [Suspect]
     Active Substance: DENOSUMAB
     Indication: OSTEOPOROSIS
     Dosage: ?          OTHER FREQUENCY:EVERY 6 MONTHS;?
     Route: 058
     Dates: start: 201810

REACTIONS (5)
  - Parathyroidectomy [None]
  - Bone pain [None]
  - Influenza like illness [None]
  - Gait disturbance [None]
  - Blood calcium increased [None]

NARRATIVE: CASE EVENT DATE: 201810
